FAERS Safety Report 6919238-4 (Version None)
Quarter: 2010Q3

REPORT INFORMATION
  Report Type: 
  Country: None (occurrence: None)
  Receive Date: 20100810
  Receipt Date: 20100810
  Transmission Date: 20110219
  Serious: Yes (Other)
  Sender: FDA-Public Use
  Company Number: None

PATIENT
  Sex: Male

DRUGS (1)
  1. ABILIFY [Suspect]
     Indication: PSYCHOTIC DISORDER
     Dosage: 5 MG QAM PO 10 MG QPM PO
     Route: 048
     Dates: start: 20100601, end: 20100801

REACTIONS (1)
  - PARKINSON'S DISEASE [None]
